FAERS Safety Report 6389471-1 (Version None)
Quarter: 2009Q4

REPORT INFORMATION
  Report Type: 
  Country: None (occurrence: None)
  Receive Date: 20091006
  Receipt Date: 20090928
  Transmission Date: 20100525
  Serious: Yes (Death, Hospitalization, Disabling)
  Sender: FDA-Public Use
  Company Number: US-ROCHE-659140

PATIENT
  Sex: Female

DRUGS (2)
  1. XELODA [Suspect]
     Indication: BREAST CANCER METASTATIC
     Route: 048
  2. TYKERB [Suspect]
     Indication: BREAST CANCER METASTATIC
     Route: 048
     Dates: start: 20090901, end: 20090901

REACTIONS (1)
  - MALIGNANT NEOPLASM PROGRESSION [None]
